FAERS Safety Report 7500481-0 (Version None)
Quarter: 2011Q2

REPORT INFORMATION
  Report Type: 
  Country: None (occurrence: None)
  Receive Date: 20110524
  Receipt Date: 20110420
  Transmission Date: 20111010
  Serious: No
  Sender: FDA-Public Use
  Company Number: US-BRISTOL-MYERS SQUIBB COMPANY-15689748

PATIENT
  Age: 69 Year
  Sex: Female

DRUGS (1)
  1. ONGLYZA [Suspect]
     Indication: DIABETES MELLITUS
     Dosage: ROUTE:INJECTED
     Dates: start: 20110316, end: 20110316

REACTIONS (2)
  - DIARRHOEA [None]
  - NAUSEA [None]
